FAERS Safety Report 9786977 (Version 1)
Quarter: 2013Q4

REPORT INFORMATION
  Report Type: Spontaneous
  Country: US (occurrence: US)
  Receive Date: 20131227
  Receipt Date: 20131227
  Transmission Date: 20140711
  Serious: Yes (Other)
  Sender: FDA-Public Use
  Company Number: CHPA2013US018778

PATIENT
  Age: 66 Year
  Sex: Female

DRUGS (8)
  1. 4 WAY SALINE MOISTURIZING MIST [Suspect]
     Indication: NASAL DRYNESS
     Dosage: UNK UNK, TID
     Route: 045
     Dates: start: 201301
  2. 4 WAY SALINE MOISTURIZING MIST [Suspect]
     Indication: MULTIPLE ALLERGIES
     Dosage: 2-3 DF, TID
     Route: 045
     Dates: start: 2009
  3. 4 WAY SALINE MOISTURIZING MIST [Suspect]
     Indication: PARANASAL SINUS HYPERSECRETION
  4. 4 WAY SALINE MOISTURIZING MIST [Suspect]
     Indication: OFF LABEL USE
  5. HYDROXYZINE [Concomitant]
     Dosage: UNK, QHS
  6. PAXIL//PIROXICAM [Concomitant]
     Dosage: 10 UNK, QD
     Route: 048
  7. AMITRIPTYLINE [Concomitant]
     Indication: SLEEP DISORDER
     Route: 065
  8. TRAMADOL [Concomitant]
     Route: 065

REACTIONS (6)
  - Diabetes mellitus [Not Recovered/Not Resolved]
  - Hypersensitivity [Not Recovered/Not Resolved]
  - Arthropathy [Recovered/Resolved]
  - Foot fracture [Recovered/Resolved]
  - Weight decreased [Not Recovered/Not Resolved]
  - Therapeutic response unexpected [Unknown]
